FAERS Safety Report 9057571 (Version 1)
Quarter: 2013Q1

REPORT INFORMATION
  Report Type: Spontaneous
  Country: US (occurrence: None)
  Receive Date: 20130204
  Receipt Date: 20130204
  Transmission Date: 20140127
  Serious: Yes (Hospitalization)
  Sender: FDA-Public Use
  Company Number: None

PATIENT
  Age: 92 Year
  Sex: Male
  Weight: 94.7 kg

DRUGS (8)
  1. DIPYRIDAMOLE [Suspect]
     Indication: ARTHRITIS
     Route: 048
  2. IBUPROFEN [Suspect]
     Route: 048
  3. LASIX [Concomitant]
  4. DOCUSATE SODIUM [Concomitant]
  5. DILTIAZEM [Concomitant]
  6. PROSCAR [Concomitant]
  7. VIT D3 [Concomitant]
  8. NTG [Concomitant]

REACTIONS (5)
  - Nausea [None]
  - Diverticulum intestinal haemorrhagic [None]
  - Blood potassium abnormal [None]
  - Vomiting [None]
  - Vertigo positional [None]
